FAERS Safety Report 4342720-3 (Version None)
Quarter: 2004Q1

REPORT INFORMATION
  Report Type: 
  Country: None (occurrence: None)
  Receive Date: 20040213
  Receipt Date: 20031028
  Transmission Date: 20041129
  Serious: Yes (Life-Threatening, Hospitalization)
  Sender: FDA-Public Use
  Company Number: 350191

PATIENT
  Age: 49 Year
  Sex: Male
  Weight: 67.6 kg

DRUGS (6)
  1. PEGASYS [Suspect]
     Indication: HEPATITIS C
     Dosage: SUBCUTANEOUS
     Route: 058
     Dates: start: 20030618
  2. COPEGUS [Suspect]
     Indication: HEPATITIS C
     Dosage: ORAL
     Route: 048
     Dates: start: 20030618
  3. KLONOPIN [Suspect]
     Dates: start: 20031002
  4. GLUCOVANCE (GLYBURIDE/METFORMIN) [Concomitant]
  5. HUMULIN (INSULIN HUMAN) [Concomitant]
  6. ANTACID (ANTACID NOS) [Concomitant]

REACTIONS (2)
  - NO ADVERSE EFFECT [None]
  - OVERDOSE [None]
